FAERS Safety Report 18771632 (Version 1)
Quarter: 2021Q1

REPORT INFORMATION
  Report Type: Spontaneous
  Country: CA (occurrence: CA)
  Receive Date: 20210121
  Receipt Date: 20210121
  Transmission Date: 20210419
  Serious: Yes (Death, Other)
  Sender: FDA-Public Use
  Company Number: CA-PURDUE-USA-2020-0198553

PATIENT
  Sex: Male

DRUGS (13)
  1. SENOKOT [Suspect]
     Active Substance: SENNOSIDES
     Indication: PAIN
     Dosage: UNK
     Route: 065
  2. OXYCODONE HYDROCHLORIDE. [Suspect]
     Active Substance: OXYCODONE HYDROCHLORIDE
     Indication: PAIN
     Dosage: UNK
     Route: 065
  3. PERCOCET                           /00446701/ [Suspect]
     Active Substance: ACETAMINOPHEN\OXYCODONE HYDROCHLORIDE\OXYCODONE TEREPHTHALATE
     Indication: PAIN
     Dosage: UNK
     Route: 065
  4. DOXEPIN [Suspect]
     Active Substance: DOXEPIN
     Indication: PAIN
     Dosage: UNK
     Route: 065
  5. TYLENOL WITH CODEINE [Suspect]
     Active Substance: ACETAMINOPHEN\CODEINE PHOSPHATE
     Indication: PAIN
     Dosage: UNK
     Route: 065
  6. OXYCONTIN [Suspect]
     Active Substance: OXYCODONE HYDROCHLORIDE
     Indication: PAIN
     Dosage: UNK
     Route: 048
  7. AMITRIPTYLINE [Suspect]
     Active Substance: AMITRIPTYLINE
     Indication: PAIN
     Dosage: UNK
     Route: 065
  8. NORTRIPTYLINE [Suspect]
     Active Substance: NORTRIPTYLINE
     Indication: PAIN
     Dosage: UNK
     Route: 065
  9. OXYCOCET [Suspect]
     Active Substance: ACETAMINOPHEN\OXYCODONE HYDROCHLORIDE
     Indication: PAIN
     Dosage: UNK
     Route: 065
  10. CLONAZEPAM. [Suspect]
     Active Substance: CLONAZEPAM
     Indication: PAIN
     Dosage: UNK
     Route: 065
  11. TORADOL [Suspect]
     Active Substance: KETOROLAC TROMETHAMINE
     Indication: PAIN
     Dosage: UNK
     Route: 065
  12. MS CONTIN [Suspect]
     Active Substance: MORPHINE SULFATE
     Indication: PAIN
     Dosage: UNK
     Route: 048
  13. LUVOX [Suspect]
     Active Substance: FLUVOXAMINE MALEATE
     Indication: PAIN
     Dosage: UNK
     Route: 065

REACTIONS (36)
  - Mental disorder [Unknown]
  - Gait disturbance [Unknown]
  - Constipation [Unknown]
  - Hypertension [Unknown]
  - Muscle spasms [Unknown]
  - Insomnia [Unknown]
  - Headache [Unknown]
  - Somnolence [Unknown]
  - Dizziness [Unknown]
  - Paternal exposure during pregnancy [Unknown]
  - Pain [Unknown]
  - Tinnitus [Unknown]
  - Tremor [Unknown]
  - Nightmare [Unknown]
  - Aggression [Unknown]
  - Libido disorder [Unknown]
  - Drug dependence [Unknown]
  - Fatigue [Unknown]
  - Weight decreased [Unknown]
  - Memory impairment [Unknown]
  - Cold sweat [Unknown]
  - Completed suicide [Fatal]
  - Suicide attempt [Unknown]
  - General physical health deterioration [Unknown]
  - Posture abnormal [Unknown]
  - Suicidal ideation [Unknown]
  - Depression [Unknown]
  - Feeding disorder [Unknown]
  - Disturbance in attention [Unknown]
  - Dissociation [Unknown]
  - Overdose [Fatal]
  - Drug withdrawal syndrome [Unknown]
  - Pyrexia [Unknown]
  - Personality change [Unknown]
  - Hallucination [Unknown]
  - Sleep disorder [Unknown]
